FAERS Safety Report 10167391 (Version 1)
Quarter: 2014Q2

REPORT INFORMATION
  Report Type: Spontaneous
  Country: US (occurrence: US)
  Receive Date: 20140512
  Receipt Date: 20140512
  Transmission Date: 20141212
  Serious: Yes (Hospitalization)
  Sender: FDA-Public Use
  Company Number: US-PFIZER INC-2014127846

PATIENT
  Sex: Male

DRUGS (3)
  1. LYRICA [Suspect]
     Indication: NERVE INJURY
     Dosage: 450 MG, DAILY
     Route: 048
     Dates: start: 2010
  2. OXYCODONE [Concomitant]
     Indication: NERVE INJURY
     Dosage: 30 MG (6-8 TABLETS A DAY), UNK
  3. NABUMETONE [Concomitant]
     Indication: INFLAMMATION
     Dosage: 750 MG, 2X/DAY

REACTIONS (1)
  - Back disorder [Unknown]
